FAERS Safety Report 20349697 (Version 2)
Quarter: 2022Q1

REPORT INFORMATION
  Report Type: Spontaneous
  Country: US (occurrence: US)
  Receive Date: 20220119
  Receipt Date: 20220216
  Transmission Date: 20220423
  Serious: Yes (Other)
  Sender: FDA-Public Use
  Company Number: US-Accord-250903

PATIENT
  Age: 48 Year
  Sex: Male

DRUGS (3)
  1. FLUOROURACIL [Suspect]
     Active Substance: FLUOROURACIL
     Indication: Colorectal adenocarcinoma
     Dosage: DECREASED TO 1800 MG/M2, 1200 MG/M2
  2. OXALIPLATIN [Concomitant]
     Active Substance: OXALIPLATIN
     Indication: Colorectal adenocarcinoma
     Dates: start: 2019
  3. CETUXIMAB [Concomitant]
     Active Substance: CETUXIMAB
     Indication: Colorectal adenocarcinoma
     Dates: start: 2019

REACTIONS (2)
  - Arteriospasm coronary [Recovered/Resolved]
  - Atrial fibrillation [Recovered/Resolved]
